FAERS Safety Report 6566588-X (Version None)
Quarter: 2010Q1

REPORT INFORMATION
  Report Type: 
  Country: None (occurrence: None)
  Receive Date: 20100127
  Receipt Date: 20100119
  Transmission Date: 20100710
  Serious: Yes (Death)
  Sender: FDA-Public Use
  Company Number: PERC20100008

PATIENT
  Age: 26 Year
  Sex: Male

DRUGS (9)
  1. PERCOCET [Suspect]
     Indication: DRUG USE FOR UNKNOWN INDICATION
  2. ALCOHOL (ETHANOL) [Suspect]
     Indication: DRUG USE FOR UNKNOWN INDICATION
  3. COCAINE (COCAINE) [Suspect]
     Indication: DRUG USE FOR UNKNOWN INDICATION
  4. BENZOYLECGONINE (ECGONINE BENZOATE) [Suspect]
     Indication: DRUG USE FOR UNKNOWN INDICATION
  5. ECGONINE (ECGONINE) [Suspect]
     Indication: DRUG USE FOR UNKNOWN INDICATION
  6. DIAZEPAM [Suspect]
     Indication: DRUG USE FOR UNKNOWN INDICATION
  7. DESMETHYLDIAZEPAM (NORDAZEPAM) [Suspect]
     Indication: DRUG USE FOR UNKNOWN INDICATION
  8. PARACETAMOL (PARACETAMOL) (PARACETAMOL) [Concomitant]
  9. CITALOPRAM HYDROBROMIDE [Concomitant]

REACTIONS (7)
  - COMPLETED SUICIDE [None]
  - DRUG TOXICITY [None]
  - DYSPNOEA [None]
  - GAIT DISTURBANCE [None]
  - OVERDOSE [None]
  - PERIPHERAL COLDNESS [None]
  - RESPIRATORY ARREST [None]
